FAERS Safety Report 9322095 (Version 1)
Quarter: 2013Q2

REPORT INFORMATION
  Report Type: Spontaneous
  Country: FI (occurrence: FI)
  Receive Date: 20130531
  Receipt Date: 20130531
  Transmission Date: 20140414
  Serious: Yes (Hospitalization, Other)
  Sender: FDA-Public Use
  Company Number: FI-ELI_LILLY_AND_COMPANY-FI201305006251

PATIENT
  Sex: Female

DRUGS (16)
  1. FORSTEO [Suspect]
     Indication: OSTEOPOROSIS
     Dosage: 20 UG, QD
     Dates: start: 201112
  2. SERETIDE [Concomitant]
     Indication: ASTHMA
  3. SINGULAIR [Concomitant]
     Indication: ASTHMA
  4. SPIRIVA [Concomitant]
     Indication: ASTHMA
  5. BRICANYL [Concomitant]
     Indication: ASTHMA
  6. MEDROL [Concomitant]
  7. IPRAMOL [Concomitant]
     Indication: ASTHMA
  8. RACEPINEPHRINE [Concomitant]
     Indication: ASTHMA
  9. PULMICORT [Concomitant]
     Indication: ASTHMA
  10. AMLODIPIN                          /00972401/ [Concomitant]
     Indication: HYPERTENSION
  11. EMCONCOR [Concomitant]
     Indication: PALPITATIONS
  12. MAREVAN [Concomitant]
     Indication: ANTICOAGULANT THERAPY
     Dosage: 3 MG, UNK
  13. SIMVASTATIN [Concomitant]
     Indication: BLOOD CHOLESTEROL
     Dosage: 20 MG, UNK
  14. PANADOL [Concomitant]
     Indication: PAIN
  15. ARCOXIA [Concomitant]
     Indication: PAIN
     Dosage: 90 MG, UNK
  16. CALCIUM +VIT D [Concomitant]
     Indication: MEDICAL DIET

REACTIONS (1)
  - Asthma [Recovering/Resolving]
